FAERS Safety Report 8047585-4 (Version None)
Quarter: 2012Q1

REPORT INFORMATION
  Report Type: 
  Country: None (occurrence: None)
  Receive Date: 20120116
  Receipt Date: 20120106
  Transmission Date: 20120608
  Serious: Yes (Other)
  Sender: FDA-Public Use
  Company Number: US-GLAXOSMITHKLINE-A0960422A

PATIENT
  Age: 2 Year
  Sex: Male

DRUGS (2)
  1. VERAMYST [Suspect]
     Indication: SINUSITIS
     Dosage: 1SPR PER DAY
     Route: 045
     Dates: start: 20120103
  2. SALINE NASAL SPRAY [Concomitant]

REACTIONS (1)
  - MANIA [None]
